FAERS Safety Report 6624101-2 (Version None)
Quarter: 2010Q1

REPORT INFORMATION
  Report Type: 
  Country: None (occurrence: None)
  Receive Date: 20100310
  Receipt Date: 20100305
  Transmission Date: 20100710
  Serious: Yes (Other)
  Sender: FDA-Public Use
  Company Number: CH-PFIZER INC-2010023123

PATIENT
  Age: 66 Year
  Sex: Male
  Weight: 88 kg

DRUGS (3)
  1. VIAGRA [Suspect]
     Dosage: 50 MG, UNK
     Route: 048
  2. SORTIS [Concomitant]
     Dosage: UNK
     Route: 048
  3. CO-DIOVAN [Concomitant]
     Dosage: UNK
     Route: 048

REACTIONS (2)
  - ASTHMA [None]
  - THROAT IRRITATION [None]
